FAERS Safety Report 8886454 (Version 3)
Quarter: 2012Q4

REPORT INFORMATION
  Report Type: Report from Study
  Country: JP (occurrence: JP)
  Receive Date: 20121105
  Receipt Date: 20121217
  Transmission Date: 20130627
  Serious: Yes (Hospitalization)
  Sender: FDA-Public Use
  Company Number: JP-GLAXOSMITHKLINE-B0841830A

PATIENT
  Age: 71 Year
  Sex: Male
  Weight: 66 kg

DRUGS (13)
  1. SAMTIREL [Suspect]
     Indication: PNEUMOCYSTIS JIROVECI PNEUMONIA
     Dosage: 750MG Twice per day
     Route: 048
     Dates: start: 20121012, end: 20121016
  2. LANSOPRAZOLE [Concomitant]
     Indication: PNEUMOCYSTIS JIROVECI PNEUMONIA
     Dosage: 15MG Per day
     Route: 048
     Dates: start: 20120809
  3. ALENDRONATE [Concomitant]
     Indication: PNEUMOCYSTIS JIROVECI PNEUMONIA
     Route: 048
     Dates: start: 20120810
  4. BAYASPIRIN [Concomitant]
     Indication: PNEUMOCYSTIS JIROVECI PNEUMONIA
     Dosage: 100MG Per day
     Route: 048
  5. VASOLAN [Concomitant]
     Dosage: 40MG Three times per day
     Route: 048
     Dates: start: 201205
  6. CIBENOL [Concomitant]
     Dosage: 50MG Three times per day
     Route: 048
     Dates: start: 201205
  7. BROTIZOLAM [Concomitant]
     Dosage: .25MG Per day
     Route: 048
     Dates: start: 20120803
  8. LIMAPROST [Concomitant]
     Indication: PNEUMOCYSTIS JIROVECI PNEUMONIA
     Dosage: 5MCG Three times per day
     Route: 048
  9. EDIROL [Concomitant]
     Indication: PNEUMOCYSTIS JIROVECI PNEUMONIA
     Dosage: .75MCG Per day
     Route: 048
     Dates: start: 20120809
  10. PREDNISOLONE [Concomitant]
     Indication: PNEUMOCYSTIS JIROVECI PNEUMONIA
     Route: 048
     Dates: start: 20120809, end: 20120914
  11. PREDNISOLONE [Concomitant]
     Indication: PNEUMOCYSTIS JIROVECI PNEUMONIA
     Route: 048
     Dates: start: 20120915
  12. METHOTREXATE [Concomitant]
     Indication: PNEUMOCYSTIS JIROVECI PNEUMONIA
     Route: 048
     Dates: start: 20120823, end: 20120830
  13. METHOTREXATE [Concomitant]
     Indication: PNEUMOCYSTIS JIROVECI PNEUMONIA
     Route: 048
     Dates: start: 20120906, end: 20120920

REACTIONS (1)
  - Agranulocytosis [Recovered/Resolved]
